FAERS Safety Report 5650817-0 (Version None)
Quarter: 2008Q1

REPORT INFORMATION
  Report Type: 
  Country: None (occurrence: None)
  Receive Date: 20080305
  Receipt Date: 20080228
  Transmission Date: 20080703
  Serious: Yes (Other)
  Sender: FDA-Public Use
  Company Number: B0470748A

PATIENT
  Age: 70 Year
  Sex: Male

DRUGS (4)
  1. NIQUITIN CQ LOZENGE [Suspect]
     Indication: SMOKING CESSATION THERAPY
     Dosage: 200LOZ PER DAY
     Route: 002
  2. NICORETTE INHALATOR [Suspect]
  3. PAINKILLER [Concomitant]
  4. ANGINA MEDICATION [Concomitant]

REACTIONS (13)
  - ACCIDENTAL EXPOSURE [None]
  - DEPENDENCE [None]
  - DRY MOUTH [None]
  - DYSGEUSIA [None]
  - INCORRECT DOSE ADMINISTERED [None]
  - MOOD ALTERED [None]
  - NERVOUSNESS [None]
  - ORAL PAIN [None]
  - PHARMACEUTICAL PRODUCT COMPLAINT [None]
  - PSYCHIATRIC SYMPTOM [None]
  - TONGUE BLACK HAIRY [None]
  - TREMOR [None]
  - WRONG TECHNIQUE IN DRUG USAGE PROCESS [None]
